FAERS Safety Report 21559913 (Version 1)
Quarter: 2022Q4

REPORT INFORMATION
  Report Type: Report from Study
  Country: US (occurrence: US)
  Receive Date: 20221107
  Receipt Date: 20221107
  Transmission Date: 20230112
  Serious: No
  Sender: FDA-Public Use
  Company Number: US-ABBVIE-4156439

PATIENT
  Weight: 80.739 kg

DRUGS (3)
  1. RINVOQ [Suspect]
     Active Substance: UPADACITINIB
     Indication: Psoriatic arthropathy
     Dosage: 15 MILLIGRAM?START DATE FEB OR MAR 2022
     Route: 048
     Dates: start: 202202
  2. OMEPRAZOLE [Concomitant]
     Active Substance: OMEPRAZOLE
     Indication: Dyspepsia
  3. METOPROLOL [Concomitant]
     Active Substance: METOPROLOL
     Indication: Blood pressure management

REACTIONS (2)
  - Arthropathy [Not Recovered/Not Resolved]
  - Joint swelling [Not Recovered/Not Resolved]

NARRATIVE: CASE EVENT DATE: 20221004
